FAERS Safety Report 9526234 (Version 2)
Quarter: 2013Q3

REPORT INFORMATION
  Report Type: Spontaneous
  Country: JP (occurrence: JP)
  Receive Date: 20130916
  Receipt Date: 20130916
  Transmission Date: 20140515
  Serious: Yes (Death, Hospitalization, Other)
  Sender: FDA-Public Use
  Company Number: JP-ELI_LILLY_AND_COMPANY-JP_051007769

PATIENT
  Age: 53 Year
  Sex: Male
  Weight: 60 kg

DRUGS (9)
  1. GEMZAR [Suspect]
     Indication: PANCREATIC CARCINOMA STAGE IV
     Dosage: 1000 MG/M2, OTHER
     Route: 042
     Dates: start: 20041019
  2. GEMZAR [Suspect]
     Dosage: 1000 MG/M2, OTHER
     Route: 042
     Dates: start: 200508, end: 200508
  3. GEMZAR [Suspect]
     Dosage: 1000 MG/M2, OTHER
     Route: 042
     Dates: start: 20050915, end: 20050915
  4. VEEN-F [Concomitant]
     Dates: start: 20041012
  5. ADONA [Concomitant]
     Dosage: UNK, UNK
     Dates: start: 20051012
  6. TRANSAMIN                               /JPN/ [Concomitant]
     Dosage: 1 D/F, UNK
     Dates: start: 20051012
  7. LOXONIN [Concomitant]
     Dosage: UNK, AS NEEDED
     Dates: start: 20051012
  8. INDACIN [Concomitant]
     Dosage: UNK, AS NEEDED
     Route: 054
     Dates: start: 20051012
  9. INDACIN [Concomitant]
     Dosage: 2 D/F, DAILY (1/D)
     Route: 054
     Dates: start: 20051020

REACTIONS (12)
  - Pulmonary alveolar haemorrhage [Fatal]
  - Interstitial lung disease [Fatal]
  - Anaemia [Unknown]
  - Platelet count decreased [Unknown]
  - Anaemia [Unknown]
  - Platelet count decreased [Unknown]
  - Interstitial lung disease [Recovering/Resolving]
  - Interstitial lung disease [Recovered/Resolved]
  - Bone marrow failure [Recovering/Resolving]
  - Bone marrow failure [Recovered/Resolved]
  - Platelet count decreased [Unknown]
  - Haemoglobin decreased [Unknown]
